FAERS Safety Report 13755191 (Version 1)
Quarter: 2017Q3

REPORT INFORMATION
  Report Type: Spontaneous
  Country: US (occurrence: US)
  Receive Date: 20170714
  Receipt Date: 20170714
  Transmission Date: 20171127
  Serious: Yes (Hospitalization)
  Sender: FDA-Public Use
  Company Number: US-TEVA-787712USA

PATIENT
  Age: 38 Year
  Sex: Female

DRUGS (4)
  1. EPIRUBICIN [Suspect]
     Active Substance: EPIRUBICIN
     Indication: ADENOCARCINOMA GASTRIC
     Dosage: RECEIVED 3 CYCLES AND LATER RECEIVED REDUCED DOSES IN FOURTH CYCLE
     Route: 065
  2. FLUOROURACIL. [Suspect]
     Active Substance: FLUOROURACIL
     Indication: ADENOCARCINOMA GASTRIC
     Dosage: RECEIVED 3 CYCLES AND LATER RECEIVED REDUCED DOSES IN FOURTH CYCLE
     Route: 065
  3. CISPLATIN. [Suspect]
     Active Substance: CISPLATIN
     Indication: ADENOCARCINOMA GASTRIC
     Dosage: RECEIVED 3 CYCLES AND LATER RECEIVED REDUCED DOSES IN FOURTH CYCLE
     Route: 065
  4. XELODA [Suspect]
     Active Substance: CAPECITABINE
     Indication: ADENOCARCINOMA GASTRIC
     Dosage: CONTINUOUS INFUCION DOSE REDUCED BY 30%
     Route: 050

REACTIONS (2)
  - Asthenia [Unknown]
  - Nausea [Unknown]
